FAERS Safety Report 10634010 (Version 1)
Quarter: 2014Q4

REPORT INFORMATION
  Report Type: Spontaneous
  Country: JP (occurrence: JP)
  Receive Date: 20141205
  Receipt Date: 20141205
  Transmission Date: 20150529
  Serious: Yes (Other)
  Sender: FDA-Public Use
  Company Number: PHHY2014JP154876

PATIENT
  Age: 70 Year
  Sex: Male
  Weight: 65.1 kg

DRUGS (2)
  1. METOCLOPRAMIDE. [Suspect]
     Active Substance: METOCLOPRAMIDE
     Indication: ACROMEGALY
     Route: 065
  2. BROMOCRIPTINE [Suspect]
     Active Substance: BROMOCRIPTINE
     Indication: ACROMEGALY
     Route: 065

REACTIONS (3)
  - Blood growth hormone increased [Recovered/Resolved]
  - Blood prolactin increased [Unknown]
  - Blood prolactin decreased [Unknown]
